FAERS Safety Report 22001329 (Version 1)
Quarter: 2023Q1

REPORT INFORMATION
  Report Type: Report from Study
  Country: US (occurrence: US)
  Receive Date: 20230216
  Receipt Date: 20230216
  Transmission Date: 20230418
  Serious: Yes (Hospitalization)
  Sender: FDA-Public Use
  Company Number: US-VERTEX PHARMACEUTICALS-2023-002326

PATIENT
  Age: 24 Year
  Sex: Male

DRUGS (18)
  1. TRIKAFTA [Suspect]
     Active Substance: ELEXACAFTOR\IVACAFTOR\TEZACAFTOR
     Indication: Cystic fibrosis
     Dosage: TWO ORANGE TABLETS AM AND ONE BLUE TABLET PM
     Route: 048
     Dates: start: 20200211, end: 2023
  2. ACETYLCYSTEINE [Concomitant]
     Active Substance: ACETYLCYSTEINE
     Dosage: SOLUTION
  3. ADVAIR HFA [Concomitant]
     Active Substance: FLUTICASONE PROPIONATE\SALMETEROL XINAFOATE
     Dosage: AER 230/21
  4. ALBUTEROL SULFATE [Concomitant]
     Active Substance: ALBUTEROL SULFATE
     Dosage: AER
  5. ALBUTEROL [Concomitant]
     Active Substance: ALBUTEROL
     Dosage: 0.083%
     Route: 055
  6. ALBUTEROL [Concomitant]
     Active Substance: ALBUTEROL
     Dosage: 0.5%
     Route: 055
  7. CATHFLO ACTIVASE [Concomitant]
     Active Substance: ALTEPLASE
  8. COLISTIMETHATE [Concomitant]
     Active Substance: COLISTIMETHATE SODIUM
  9. CREON [Concomitant]
     Active Substance: PANCRELIPASE AMYLASE\PANCRELIPASE LIPASE\PANCRELIPASE PROTEASE
     Dosage: 24000 UNIT
  10. CROMOLYN SODIUM [Concomitant]
     Active Substance: CROMOLYN SODIUM
     Dosage: 20 MG/2ML
     Route: 055
  11. DOCOSANOL [Concomitant]
     Active Substance: DOCOSANOL
     Dosage: CREAM
  12. FAMOTIDINE [Concomitant]
     Active Substance: FAMOTIDINE
  13. FLUTICASONE [Concomitant]
     Active Substance: FLUTICASONE
     Dosage: SPR
  14. PHYTONADIONE [Concomitant]
     Active Substance: PHYTONADIONE
  15. PREDNISONE [Concomitant]
     Active Substance: PREDNISONE
  16. SMOOTH LAX (POLYETHYLENE GLYCOL 3350) [Concomitant]
     Active Substance: POLYETHYLENE GLYCOL 3350
     Dosage: POW
  17. TOBI PODHALER [Concomitant]
     Active Substance: TOBRAMYCIN
     Dosage: 224=4PK
  18. TOBRAMYCIN [Concomitant]
     Active Substance: TOBRAMYCIN
     Dosage: 300/5ML TOBI GEQ
     Route: 055

REACTIONS (1)
  - Cystic fibrosis [Not Recovered/Not Resolved]

NARRATIVE: CASE EVENT DATE: 20230201
